FAERS Safety Report 13181690 (Version 15)
Quarter: 2019Q4

REPORT INFORMATION
  Report Type: Report from Study
  Country: US (occurrence: US)
  Receive Date: 20170202
  Receipt Date: 20191213
  Transmission Date: 20200122
  Serious: Yes (Death, Life-Threatening, Hospitalization, Other)
  Sender: FDA-Public Use
  Company Number: US-ACTELION-A-NJ2017-149270

PATIENT
  Age: 70 Year
  Sex: Female

DRUGS (20)
  1. UPTRAVI [Suspect]
     Active Substance: SELEXIPAG
     Indication: PULMONARY ARTERIAL HYPERTENSION
     Dosage: 1600 MCG, BID
     Route: 048
  2. CALCIUM W/MAGNESIUM [Concomitant]
     Active Substance: CALCIUM\MAGNESIUM
  3. KCL [Concomitant]
     Active Substance: POTASSIUM CHLORIDE
  4. FERROUS SULFATE. [Concomitant]
     Active Substance: FERROUS SULFATE
  5. METOPROLOL. [Concomitant]
     Active Substance: METOPROLOL
  6. GABAPENTIN. [Concomitant]
     Active Substance: GABAPENTIN
  7. TRAMADOL. [Concomitant]
     Active Substance: TRAMADOL
  8. PANTOPRAZOLE [Concomitant]
     Active Substance: PANTOPRAZOLE
  9. SPIRONOLACTONE. [Concomitant]
     Active Substance: SPIRONOLACTONE
  10. LASIX [Concomitant]
     Active Substance: FUROSEMIDE
  11. WARFARIN [Concomitant]
     Active Substance: WARFARIN
  12. OXYGEN. [Concomitant]
     Active Substance: OXYGEN
  13. OPSUMIT [Suspect]
     Active Substance: MACITENTAN
     Indication: PULMONARY ARTERIAL HYPERTENSION
     Dosage: 10 MG, QD
     Route: 048
     Dates: start: 20161215, end: 20170517
  14. LORAZEPAM. [Concomitant]
     Active Substance: LORAZEPAM
  15. UPTRAVI [Suspect]
     Active Substance: SELEXIPAG
     Dosage: UNK
     Route: 048
  16. ADEMPAS [Suspect]
     Active Substance: RIOCIGUAT
     Indication: PRODUCT USED FOR UNKNOWN INDICATION
     Route: 065
  17. FLUOXETINE [Concomitant]
     Active Substance: FLUOXETINE HYDROCHLORIDE
  18. LEVOTHYROXINE. [Concomitant]
     Active Substance: LEVOTHYROXINE
  19. AMLODIPINE [Concomitant]
     Active Substance: AMLODIPINE BESYLATE
  20. FLUNISOLIDE. [Concomitant]
     Active Substance: FLUNISOLIDE

REACTIONS (16)
  - Anaemia [Recovered/Resolved]
  - Hypotension [Unknown]
  - Metabolic encephalopathy [Unknown]
  - Cardiac failure acute [Fatal]
  - Pulmonary arterial hypertension [Fatal]
  - Pulmonary haemorrhage [Recovered/Resolved]
  - Respiratory failure [Recovered/Resolved]
  - Respiratory syncytial virus infection [Unknown]
  - Pneumonia [Not Recovered/Not Resolved]
  - Gastrointestinal haemorrhage [Recovered/Resolved]
  - Dizziness [Unknown]
  - Atrial fibrillation [Unknown]
  - Lung disorder [Unknown]
  - Shock haemorrhagic [Recovered/Resolved]
  - Productive cough [Not Recovered/Not Resolved]
  - Dyspnoea [Not Recovered/Not Resolved]

NARRATIVE: CASE EVENT DATE: 20170122
